FAERS Safety Report 9254384 (Version 1)
Quarter: 2013Q2

REPORT INFORMATION
  Report Type: Spontaneous
  Country: US (occurrence: None)
  Receive Date: 20130422
  Receipt Date: 20130422
  Transmission Date: 20140414
  Serious: No
  Sender: FDA-Public Use
  Company Number: None

PATIENT
  Age: 21 Year
  Sex: Female

DRUGS (2)
  1. PEGASYS [Suspect]
     Indication: HEPATITIS C
     Dates: start: 20130408
  2. RIBAPAK [Suspect]
     Indication: HEPATITIS C
     Route: 048
     Dates: start: 20130408

REACTIONS (4)
  - Tremor [None]
  - Presyncope [None]
  - Feeling hot [None]
  - Skin discolouration [None]
